FAERS Safety Report 5897988-9 (Version None)
Quarter: 2008Q3

REPORT INFORMATION
  Report Type: 
  Country: None (occurrence: None)
  Receive Date: 20080924
  Receipt Date: 20080924
  Transmission Date: 20090109
  Serious: No
  Sender: FDA-Public Use
  Company Number: None

PATIENT
  Age: 67 Year
  Sex: Male

DRUGS (2)
  1. FENTANYL [Suspect]
     Dosage: 100 MCG ONCE IV
     Route: 042
     Dates: start: 20080909, end: 20080909
  2. MIDAZOLAM [Suspect]
     Dosage: 1 MG ONCE IV
     Route: 042
     Dates: start: 20080909, end: 20080909

REACTIONS (2)
  - OXYGEN SATURATION DECREASED [None]
  - RESPIRATORY DEPRESSION [None]
